FAERS Safety Report 4397759-9 (Version None)
Quarter: 2004Q3

REPORT INFORMATION
  Report Type: 
  Country: None (occurrence: None)
  Receive Date: 20040713
  Receipt Date: 20040630
  Transmission Date: 20050211
  Serious: Yes (Disabling)
  Sender: FDA-Public Use
  Company Number: 200413264BCC

PATIENT
  Age: 62 Year
  Sex: Female
  Weight: 72.5755 kg

DRUGS (11)
  1. CAMPHO-PHENIQUE LIQUID [Suspect]
  2. ASPIRIN [Concomitant]
  3. PLAVIX [Concomitant]
  4. LIPITOR [Concomitant]
  5. ATENOLOL [Concomitant]
  6. COZAAR [Concomitant]
  7. PROZAC [Concomitant]
  8. ELAVIL [Concomitant]
  9. PROTONIX [Concomitant]
  10. LASIX-SLOW RELEASE [Concomitant]
  11. LA SUPPLEMENT [Concomitant]

REACTIONS (2)
  - AGEUSIA [None]
  - TONGUE DISORDER [None]
